FAERS Safety Report 9131995 (Version 1)
Quarter: 2013Q1

REPORT INFORMATION
  Report Type: Report from Study
  Country: US (occurrence: US)
  Receive Date: 20130301
  Receipt Date: 20130301
  Transmission Date: 20140127
  Serious: No
  Sender: FDA-Public Use
  Company Number: US-MYLANLABS-2012S1026396

PATIENT
  Age: 16 Year
  Sex: Female
  Weight: 49.9 kg

DRUGS (3)
  1. AMNESTEEM CAPSULES [Suspect]
     Indication: ACNE
     Dosage: 40MG/QD X 4 WEEKS; 50MG/QD X30 DAYS
     Dates: start: 201211, end: 20121219
  2. CLARAVIS [Suspect]
     Indication: ACNE
     Dosage: 40MG/QD X 4 WEEKS; 50MG/QD X 30 DAYS
     Route: 048
     Dates: start: 20121015, end: 201211
  3. CLARAVIS [Suspect]
     Indication: ACNE
     Dosage: 40MG/QD X 4 WEEKS; 50MG/QD X 30 DAYS
     Route: 048
     Dates: start: 201211, end: 20121219

REACTIONS (2)
  - Depression [Recovered/Resolved]
  - Crying [Recovered/Resolved]
